APPROVED DRUG PRODUCT: FAMOTIDINE
Active Ingredient: FAMOTIDINE
Strength: 40MG/5ML
Dosage Form/Route: FOR SUSPENSION;ORAL
Application: A216427 | Product #001 | TE Code: AB
Applicant: AMNEAL PHARMACEUTICALS LLC
Approved: Aug 4, 2022 | RLD: No | RS: No | Type: RX